FAERS Safety Report 9235498 (Version 1)
Quarter: 2013Q1

REPORT INFORMATION
  Report Type: Spontaneous
  Country: US (occurrence: None)
  Receive Date: 20121031
  Receipt Date: 20121031
  Transmission Date: 20140127
  Serious: No
  Sender: FDA-Public Use
  Company Number: PHEH2012US011939

PATIENT
  Age: 32 Year
  Sex: Female

DRUGS (9)
  1. GILENYA [Suspect]
     Indication: MULTIPLE SCLEROSIS
     Route: 048
     Dates: start: 20120306
  2. PROZAC [Concomitant]
  3. PROVIGIL [Concomitant]
  4. AMANTADINE [Concomitant]
  5. TRIAMTERENE [Concomitant]
  6. PERCOCET [Concomitant]
  7. CLONIDINE [Concomitant]
  8. DILAUDID [Concomitant]
  9. PACLOSAN [Concomitant]

REACTIONS (3)
  - Chest pain [None]
  - Malaise [None]
  - Inappropriate schedule of drug administration [None]
